FAERS Safety Report 8428862 (Version 3)
Quarter: 2015Q1

REPORT INFORMATION
  Report Type: Spontaneous
  Country: US (occurrence: US)
  Receive Date: 20120227
  Receipt Date: 20150114
  Transmission Date: 20150721
  Serious: Yes (Hospitalization, Other)
  Sender: FDA-Public Use
  Company Number: US-ASTRAZENECA-2009SE30276

PATIENT
  Age: 55 Year
  Sex: Female
  Weight: 78.5 kg

DRUGS (13)
  1. SEROQUEL XR [Suspect]
     Active Substance: QUETIAPINE FUMARATE
     Indication: DEPRESSION
     Route: 048
  2. OXYCODONE [Concomitant]
     Active Substance: OXYCODONE
  3. VITAMIN B12 [Concomitant]
     Active Substance: CYANOCOBALAMIN
     Indication: VITAMIN B12 ABNORMAL
  4. LEUCOVORIN [Concomitant]
     Active Substance: LEUCOVORIN
  5. METOPROLOL [Concomitant]
     Active Substance: METOPROLOL
     Indication: BLOOD PRESSURE
     Route: 048
  6. TIZANIDINE (TIZANIDINE) [Concomitant]
     Active Substance: TIZANIDINE
  7. GABAPENTIN. [Concomitant]
     Active Substance: GABAPENTIN
  8. BENZONATATE. [Concomitant]
     Active Substance: BENZONATATE
  9. LASIX [Concomitant]
     Active Substance: FUROSEMIDE
  10. KLOR-CON [Concomitant]
     Active Substance: POTASSIUM CHLORIDE
     Indication: MINERAL SUPPLEMENTATION
     Route: 048
  11. LIDODERM [Concomitant]
     Active Substance: LIDOCAINE
     Route: 062
  12. NEXIUM [Suspect]
     Active Substance: ESOMEPRAZOLE MAGNESIUM
     Indication: GASTROOESOPHAGEAL REFLUX DISEASE
     Route: 048
  13. SEROQUEL XR [Suspect]
     Active Substance: QUETIAPINE FUMARATE
     Indication: ANXIETY
     Route: 048

REACTIONS (17)
  - Nasopharyngitis [Unknown]
  - Blood cholesterol increased [Unknown]
  - Bronchitis [Unknown]
  - Thrombosis [Unknown]
  - Osteoporosis [Unknown]
  - Chills [Unknown]
  - Anxiety [Unknown]
  - Pyrexia [Unknown]
  - Infected naevus [Unknown]
  - Fungal oesophagitis [Unknown]
  - Asthma [Unknown]
  - Hypertension [Unknown]
  - Depression [Unknown]
  - Pneumonia [Unknown]
  - Rheumatoid arthritis [Unknown]
  - Off label use [Unknown]
  - Thyroid disorder [Unknown]

NARRATIVE: CASE EVENT DATE: 20141201
